FAERS Safety Report 4470047-8 (Version None)
Quarter: 2004Q3

REPORT INFORMATION
  Report Type: 
  Country: None (occurrence: None)
  Receive Date: 20040920
  Receipt Date: 20040823
  Transmission Date: 20050211
  Serious: Yes (Other)
  Sender: FDA-Public Use
  Company Number: PHEH2004US08396

PATIENT
  Age: 45 Year
  Sex: Female

DRUGS (1)
  1. ZOMETA [Suspect]
     Indication: BREAST CANCER
     Dosage: ONE TIME PER MONTH, INTRAVENOUS
     Route: 042
     Dates: start: 20040507

REACTIONS (3)
  - ABSCESS [None]
  - BONE DENSITY DECREASED [None]
  - OSTEONECROSIS [None]
